FAERS Safety Report 7402984-6 (Version None)
Quarter: 2011Q2

REPORT INFORMATION
  Report Type: 
  Country: None (occurrence: None)
  Receive Date: 20110408
  Receipt Date: 20110315
  Transmission Date: 20111010
  Serious: No
  Sender: FDA-Public Use
  Company Number: US-B.I. PHARMACEUTICALS,INC./RIDGEFIELD-2011-BP-08176BP

PATIENT
  Age: 78 Year

DRUGS (5)
  1. BENZOPRYL [Concomitant]
  2. AMIODARONE [Concomitant]
  3. PRADAXA [Suspect]
     Dosage: 300 MG
  4. STATIN [Concomitant]
  5. AMLODIPINE [Concomitant]

REACTIONS (4)
  - BLOOD URINE PRESENT [None]
  - INTERNATIONAL NORMALISED RATIO [None]
  - PROTHROMBIN TIME [None]
  - ACTIVATED PARTIAL THROMBOPLASTIN TIME [None]
